FAERS Safety Report 26044841 (Version 1)
Quarter: 2025Q4

REPORT INFORMATION
  Report Type: Spontaneous
  Country: TW (occurrence: TW)
  Receive Date: 20251114
  Receipt Date: 20251114
  Transmission Date: 20260118
  Serious: Yes (Other)
  Sender: MACLEODS
  Company Number: TW-MACLEODS PHARMA-MAC2025056304

PATIENT

DRUGS (2)
  1. LAMIVUDINE [Suspect]
     Active Substance: LAMIVUDINE
     Indication: Hepatitis B
     Route: 065
  2. ENTECAVIR [Concomitant]
     Active Substance: ENTECAVIR
     Indication: Hepatitis B
     Route: 065

REACTIONS (3)
  - Gene mutation [Unknown]
  - Hepatic cirrhosis [Unknown]
  - Hepatocellular carcinoma [Unknown]
